FAERS Safety Report 5489469-1 (Version None)
Quarter: 2007Q4

REPORT INFORMATION
  Report Type: 
  Country: None (occurrence: None)
  Receive Date: 20071018
  Receipt Date: 20071017
  Transmission Date: 20080405
  Serious: Yes (Hospitalization)
  Sender: FDA-Public Use
  Company Number: A0688152A

PATIENT
  Age: 48 Year
  Sex: Female

DRUGS (8)
  1. CITRUCEL SUGAR-FREE SUSPENSION ORANGE [Suspect]
     Indication: IRRITABLE BOWEL SYNDROME
  2. NEXIUM [Concomitant]
  3. FEXOFENADINE HCL [Concomitant]
  4. VALTREX [Concomitant]
  5. NASACORT [Concomitant]
     Route: 045
  6. AMLODIPINE BESYLATE AND BENAZEPRIL HCL [Concomitant]
  7. MICROGESTIN FE 1/20 [Concomitant]
  8. NATURAL TEARS [Concomitant]

REACTIONS (21)
  - ABDOMINAL PAIN UPPER [None]
  - ANXIETY [None]
  - BURNING SENSATION [None]
  - CLOSTRIDIAL INFECTION [None]
  - COLITIS ULCERATIVE [None]
  - DEFAECATION URGENCY [None]
  - DIARRHOEA [None]
  - DIARRHOEA HAEMORRHAGIC [None]
  - FAECAL INCONTINENCE [None]
  - FAECAL VOLUME DECREASED [None]
  - FAECES HARD [None]
  - FEELING HOT [None]
  - FREQUENT BOWEL MOVEMENTS [None]
  - INSOMNIA [None]
  - IRRITABLE BOWEL SYNDROME [None]
  - MENOPAUSE [None]
  - PARAESTHESIA [None]
  - RECTAL TENESMUS [None]
  - RECTOCELE [None]
  - SKIN BURNING SENSATION [None]
  - WEIGHT DECREASED [None]
